FAERS Safety Report 17692933 (Version 1)
Quarter: 2020Q2

REPORT INFORMATION
  Report Type: Report from Study
  Country: CA (occurrence: CA)
  Receive Date: 20200422
  Receipt Date: 20200422
  Transmission Date: 20200714
  Serious: Yes (Hospitalization)
  Sender: FDA-Public Use
  Company Number: CA-PFIZER INC-2020156210

PATIENT
  Age: 6 Year
  Sex: Male

DRUGS (15)
  1. CASPOFUNGIN [Concomitant]
     Active Substance: CASPOFUNGIN
     Indication: PROPHYLAXIS
     Dosage: 279.14 ML, DAILY (1 EVERY 1 DAYS)
     Route: 042
  2. LEVOFLOXACIN. [Concomitant]
     Active Substance: LEVOFLOXACIN
     Indication: INFECTION PROPHYLAXIS
     Dosage: 250.0 MG, DAILY (1 EVERY 1 DAYS)
     Route: 048
  3. FLUDARABINE [Concomitant]
     Active Substance: FLUDARABINE PHOSPHATE
     Indication: CHEMOTHERAPY
     Dosage: 26.5 MG, UNK
     Route: 065
  4. ONDANSETRON [Concomitant]
     Active Substance: ONDANSETRON
     Indication: NAUSEA
  5. CYCLOPHOSPHAMIDE. [Suspect]
     Active Substance: CYCLOPHOSPHAMIDE
     Indication: LEUKAEMIA
     Dosage: 400.0 MG, UNK
     Route: 042
  6. CYTARABINE. [Concomitant]
     Active Substance: CYTARABINE
     Indication: LEUKAEMIA
     Dosage: 70.0 MG, UNK
     Route: 037
  7. POTASSIUM CHLORIDE. [Concomitant]
     Active Substance: POTASSIUM CHLORIDE
     Indication: HYPOKALAEMIA
     Dosage: 96.0 ML, UNK
     Route: 042
  8. SULFAMETHOXAZOLE AND TRIMETHOPRIM [Concomitant]
     Active Substance: SULFAMETHOXAZOLE\TRIMETHOPRIM
     Indication: PNEUMOCYSTIS JIROVECII PNEUMONIA
     Dosage: 120.0 MG, UNK
     Route: 048
  9. METHOTREXATE SODIUM. [Suspect]
     Active Substance: METHOTREXATE SODIUM
     Dosage: 12.0 MG, UNK
     Route: 037
  10. METHOTREXATE SODIUM. [Suspect]
     Active Substance: METHOTREXATE SODIUM
     Indication: CHEMOTHERAPY
     Dosage: 140.0 MG, UNK
     Route: 042
  11. TISAGENLECLEUCEL-T [Suspect]
     Active Substance: TISAGENLECLEUCEL
     Indication: ACUTE LYMPHOCYTIC LEUKAEMIA
     Dosage: 24.0 ML, UNK
     Route: 042
  12. VINCRISTINE [Concomitant]
     Active Substance: VINCRISTINE
     Indication: LEUKAEMIA
     Dosage: 1.4 MG, UNK
     Route: 042
  13. ETOPOSIDE. [Suspect]
     Active Substance: ETOPOSIDE
     Indication: LEUKAEMIA
     Dosage: 92.0 MG, UNK
     Route: 042
  14. FLUCONAZOLE. [Concomitant]
     Active Substance: FLUCONAZOLE
     Indication: INFECTION PROPHYLAXIS
     Dosage: 125.0 MG, DAILY (1 EVERY 1 DAYS)
     Route: 048
  15. ONDANSETRON [Concomitant]
     Active Substance: ONDANSETRON
     Indication: VOMITING
     Dosage: 4.7 MG,  (1 EVERY 12 HOURS)
     Route: 042

REACTIONS (15)
  - Device related infection [Recovered/Resolved]
  - Sepsis [Recovered/Resolved]
  - Perineal infection [Recovered/Resolved]
  - Left ventricular dysfunction [Recovered/Resolved]
  - Pyrexia [Recovered/Resolved]
  - Agitation [Recovered/Resolved]
  - Cellulitis [Recovered/Resolved]
  - Encephalopathy [Recovered/Resolved]
  - Neutropenia [Recovered/Resolved]
  - Bacterial infection [Recovered/Resolved]
  - Bacteraemia [Recovered/Resolved]
  - Cytokine release syndrome [Recovered/Resolved]
  - Blood fibrinogen decreased [Recovered/Resolved]
  - Confusional state [Recovered/Resolved]
  - Depressed level of consciousness [Recovered/Resolved]
